FAERS Safety Report 25229217 (Version 2)
Quarter: 2025Q3

REPORT INFORMATION
  Report Type: Report from Study
  Country: US (occurrence: US)
  Receive Date: 20250423
  Receipt Date: 20250803
  Transmission Date: 20251021
  Serious: Yes (Other)
  Sender: ALEXION PHARMACEUTICALS
  Company Number: US-AstraZeneca-CH-00851771A

PATIENT
  Sex: Female
  Weight: 53.977 kg

DRUGS (1)
  1. OLAPARIB [Suspect]
     Active Substance: OLAPARIB
     Indication: Ovarian cancer

REACTIONS (4)
  - Cataract [Unknown]
  - Back pain [Unknown]
  - Migraine [Unknown]
  - Fatigue [Unknown]
